FAERS Safety Report 4319750-0 (Version None)
Quarter: 2004Q1

REPORT INFORMATION
  Report Type: 
  Country: None (occurrence: None)
  Receive Date: 20040319
  Receipt Date: 20040315
  Transmission Date: 20041129
  Serious: Yes (Death, Hospitalization, Disabling)
  Sender: FDA-Public Use
  Company Number: CA-GLAXOSMITHKLINE-A0503176A

PATIENT
  Age: 48 Year
  Sex: Male

DRUGS (8)
  1. NAVELBINE [Suspect]
     Indication: NON-SMALL CELL LUNG CANCER
     Route: 042
     Dates: start: 20031219, end: 20040102
  2. IFOSFAMIDE [Suspect]
     Indication: NON-SMALL CELL LUNG CANCER
     Route: 042
     Dates: start: 20031219, end: 20040102
  3. MESNA [Suspect]
     Indication: NON-SMALL CELL LUNG CANCER
     Route: 048
     Dates: start: 20031219, end: 20040102
  4. MESNA [Suspect]
     Route: 042
     Dates: start: 20031219, end: 20040102
  5. OXYCOCET [Concomitant]
     Dates: end: 20040116
  6. ACETAMINOPHEN [Concomitant]
  7. OXYCONTIN [Concomitant]
     Dates: end: 20040116
  8. DEXAMETHASONE [Concomitant]

REACTIONS (6)
  - ASTHENIA [None]
  - CONDITION AGGRAVATED [None]
  - HEADACHE [None]
  - MALIGNANT NEOPLASM PROGRESSION [None]
  - METASTASES TO CENTRAL NERVOUS SYSTEM [None]
  - SOMNOLENCE [None]
